FAERS Safety Report 4530160-3 (Version None)
Quarter: 2004Q4

REPORT INFORMATION
  Report Type: 
  Country: None (occurrence: None)
  Receive Date: 20041215
  Receipt Date: 20041215
  Transmission Date: 20050328
  Serious: Yes (Death)
  Sender: FDA-Public Use
  Company Number: None

PATIENT
  Age: 77 Year
  Sex: Male
  Weight: 84.369 kg

DRUGS (1)
  1. AMIODARONE  600MG  WYETH [Suspect]
     Dosage: ONE TWICE DAILY ORAL
     Route: 048
     Dates: start: 19930101, end: 20040620

REACTIONS (2)
  - LIVER DISORDER [None]
  - LUNG DISORDER [None]
